FAERS Safety Report 7888403-4 (Version None)
Quarter: 2011Q4

REPORT INFORMATION
  Report Type: 
  Country: None (occurrence: None)
  Receive Date: 20111103
  Receipt Date: 20111031
  Transmission Date: 20120403
  Serious: Yes (Death)
  Sender: FDA-Public Use
  Company Number: CO-PFIZER INC-2011266896

PATIENT
  Sex: Female

DRUGS (4)
  1. LIPITOR [Suspect]
     Dosage: 10 MG, 1X/DAY
     Route: 048
     Dates: start: 20071203
  2. OLMESARTAN MEDOXOMIL [Suspect]
     Dosage: 20+12.5 MG, 1X/DAY
     Route: 048
     Dates: start: 20071203
  3. AMLODIPINE BESILATE [Concomitant]
     Dosage: 5 MG, 1X/DAY
     Route: 048
  4. PROPRANOLOL [Concomitant]
     Dosage: 40 MG, 1X/DAY
     Route: 048

REACTIONS (1)
  - DEATH [None]
